FAERS Safety Report 23879496 (Version 1)
Quarter: 2024Q2

REPORT INFORMATION
  Report Type: Spontaneous
  Country: US (occurrence: None)
  Receive Date: 20240520
  Receipt Date: 20240520
  Transmission Date: 20240716
  Serious: No
  Sender: FDA-Public Use
  Company Number: None

PATIENT

DRUGS (2)
  1. CARBIDOPA AND LEVODOPA [Suspect]
     Active Substance: CARBIDOPA\LEVODOPA
  2. CARBIDOPA AND LEVODOPA [Suspect]
     Active Substance: CARBIDOPA\LEVODOPA

REACTIONS (9)
  - Product dispensing error [None]
  - Product dispensing error [None]
  - Incorrect dose administered [None]
  - Malaise [None]
  - Dyspnoea [None]
  - Dyskinesia [None]
  - Dizziness [None]
  - Asthenia [None]
  - Transcription medication error [None]
